FAERS Safety Report 10007332 (Version 1)
Quarter: 2014Q1

REPORT INFORMATION
  Report Type: Spontaneous
  Country: GB (occurrence: None)
  Receive Date: 20140311
  Receipt Date: 20140311
  Transmission Date: 20141002
  Serious: Yes (Life-Threatening, Hospitalization, Disabling)
  Sender: FDA-Public Use
  Company Number: GB-LHC-2014011

PATIENT
  Age: 77 Year
  Sex: Male
  Weight: 150 kg

DRUGS (1)
  1. OXYGEN [Suspect]
     Route: 055
     Dates: start: 20140212

REACTIONS (1)
  - Anaphylactic reaction [None]
